FAERS Safety Report 17682790 (Version 3)
Quarter: 2025Q1

REPORT INFORMATION
  Report Type: Report from Study
  Country: AT (occurrence: CZ)
  Receive Date: 20200419
  Receipt Date: 20250103
  Transmission Date: 20250409
  Serious: Yes (Other)
  Sender: ROCHE
  Company Number: AT-ROCHE-2581642

PATIENT
  Age: 19 Year
  Sex: Male

DRUGS (7)
  1. RITUXIMAB [Suspect]
     Active Substance: RITUXIMAB
     Indication: Brain stem glioma
     Route: 065
  2. NIMOTUZUMAB [Suspect]
     Active Substance: NIMOTUZUMAB
     Indication: Brain stem glioma
     Route: 065
  3. VALPROATE [Suspect]
     Active Substance: VALPROIC ACID
     Indication: Brain stem glioma
     Route: 065
  4. NIVOLUMAB [Suspect]
     Active Substance: NIVOLUMAB
     Indication: Brain stem glioma
     Route: 065
  5. NIVOLUMAB [Suspect]
     Active Substance: NIVOLUMAB
     Route: 065
  6. VINORELBINE [Suspect]
     Active Substance: VINORELBINE TARTRATE
     Indication: Brain stem glioma
     Route: 065
  7. VINORELBINE [Suspect]
     Active Substance: VINORELBINE TARTRATE
     Route: 065

REACTIONS (1)
  - Encephalitis autoimmune [Recovering/Resolving]
